FAERS Safety Report 6982562-3 (Version None)
Quarter: 2010Q3

REPORT INFORMATION
  Report Type: 
  Country: None (occurrence: None)
  Receive Date: 20100914
  Receipt Date: 20100302
  Transmission Date: 20110219
  Serious: Yes (Other)
  Sender: FDA-Public Use
  Company Number: US-PFIZER INC-2010027034

PATIENT
  Sex: Male
  Weight: 99.773 kg

DRUGS (4)
  1. LYRICA [Suspect]
     Indication: MUSCULOSKELETAL PAIN
     Dosage: 300 MG, 2X/DAY
     Route: 048
     Dates: start: 20080701
  2. LYRICA [Suspect]
     Dosage: 75 MG, 2X/DAY
     Dates: start: 20080601
  3. VALIUM [Concomitant]
     Indication: MUSCLE SPASMS
     Dosage: 5 MG, 1X/DAY
     Route: 048
     Dates: start: 19870101
  4. WARFARIN [Concomitant]
     Indication: ANTICOAGULANT THERAPY
     Dosage: 7.5 MG, 1X/DAY
     Dates: start: 19890101

REACTIONS (4)
  - DRY MOUTH [None]
  - FATIGUE [None]
  - SOMNOLENCE [None]
  - VISUAL ACUITY REDUCED [None]
